FAERS Safety Report 20633732 (Version 4)
Quarter: 2022Q2

REPORT INFORMATION
  Report Type: Report from Study
  Country: EG (occurrence: EG)
  Receive Date: 20220324
  Receipt Date: 20220623
  Transmission Date: 20220721
  Serious: Yes (Hospitalization, Other)
  Sender: FDA-Public Use
  Company Number: EG-NOVARTISPH-NVSC2022EG067396

PATIENT
  Sex: Female

DRUGS (4)
  1. GILENYA [Suspect]
     Active Substance: FINGOLIMOD HYDROCHLORIDE
     Indication: Multiple sclerosis
     Dosage: 0.5 MG, QD
     Route: 048
  2. TRILEPTAL [Concomitant]
     Active Substance: OXCARBAZEPINE
     Indication: Seizure
     Dosage: 1.5 DOSAGE FORM, BID
     Route: 065
     Dates: start: 2018
  3. CALCIUM\VITAMIN D [Concomitant]
     Active Substance: CALCIUM\VITAMIN D
     Indication: Vitamin supplementation
     Dosage: UNK, BID
     Route: 065
     Dates: start: 20220531
  4. ALFACALCIDOL [Concomitant]
     Active Substance: ALFACALCIDOL
     Indication: Vitamin supplementation
     Dosage: UNK, QD
     Route: 065

REACTIONS (19)
  - Multiple sclerosis relapse [Not Recovered/Not Resolved]
  - Sensory loss [Not Recovered/Not Resolved]
  - Urinary incontinence [Not Recovered/Not Resolved]
  - Visual impairment [Not Recovered/Not Resolved]
  - Vitreous floaters [Not Recovered/Not Resolved]
  - Cyanopsia [Not Recovered/Not Resolved]
  - Tongue disorder [Not Recovered/Not Resolved]
  - Speech disorder [Not Recovered/Not Resolved]
  - Limb discomfort [Not Recovered/Not Resolved]
  - Optic atrophy [Not Recovered/Not Resolved]
  - Grip strength decreased [Recovered/Resolved with Sequelae]
  - Hypoaesthesia [Recovered/Resolved with Sequelae]
  - Balance disorder [Recovered/Resolved with Sequelae]
  - Depression [Not Recovered/Not Resolved]
  - Multiple sclerosis relapse [Recovered/Resolved]
  - Limb discomfort [Recovered/Resolved]
  - Memory impairment [Recovering/Resolving]
  - Anaemia [Recovering/Resolving]
  - Drug ineffective [Not Recovered/Not Resolved]

NARRATIVE: CASE EVENT DATE: 20190101
